FAERS Safety Report 12731067 (Version 1)
Quarter: 2016Q3

REPORT INFORMATION
  Report Type: Spontaneous
  Country: IN (occurrence: IN)
  Receive Date: 20160912
  Receipt Date: 20160912
  Transmission Date: 20161109
  Serious: Yes (Life-Threatening)
  Sender: FDA-Public Use
  Company Number: IN-ALVOGEN-2016-ALVOGEN-028375

PATIENT
  Age: 5 Year
  Sex: Female

DRUGS (8)
  1. NIFEDIPINE. [Suspect]
     Active Substance: NIFEDIPINE
     Indication: HYPERTENSION
  2. VALPARIN [Suspect]
     Active Substance: VALPROATE SODIUM
     Indication: GENERALISED TONIC-CLONIC SEIZURE
  3. LEVETIRACETAM. [Suspect]
     Active Substance: LEVETIRACETAM
     Indication: GENERALISED TONIC-CLONIC SEIZURE
  4. ACICLOVIR [Concomitant]
     Active Substance: ACYCLOVIR
  5. VALPARIN [Suspect]
     Active Substance: VALPROATE SODIUM
     Indication: SOMNOLENCE
  6. METHYLPREDNISOLONE. [Suspect]
     Active Substance: METHYLPREDNISOLONE
     Indication: STEROID THERAPY
  7. PHENYTOIN. [Suspect]
     Active Substance: PHENYTOIN
  8. LEVETIRACETAM. [Suspect]
     Active Substance: LEVETIRACETAM
     Indication: SOMNOLENCE

REACTIONS (1)
  - Porphyria acute [Not Recovered/Not Resolved]
